FAERS Safety Report 6815738-6 (Version None)
Quarter: 2010Q3

REPORT INFORMATION
  Report Type: 
  Country: None (occurrence: None)
  Receive Date: 20100702
  Receipt Date: 20100622
  Transmission Date: 20110219
  Serious: Yes (Hospitalization)
  Sender: FDA-Public Use
  Company Number: GB-AMGEN-QUU420394

PATIENT
  Sex: Female

DRUGS (4)
  1. ENBREL [Suspect]
     Indication: PRODUCT USED FOR UNKNOWN INDICATION
     Route: 058
     Dates: start: 20100526
  2. LEVOTHYROXINE SODIUM [Concomitant]
     Dosage: UNKNOWN
  3. METHOTREXATE [Concomitant]
     Dosage: UNKNOWN
  4. INDOMETHACIN SODIUM [Concomitant]
     Dosage: UNKNOWN

REACTIONS (6)
  - BUTTERFLY RASH [None]
  - HYPOAESTHESIA [None]
  - INJECTION SITE RASH [None]
  - INJECTION SITE SWELLING [None]
  - OEDEMA PERIPHERAL [None]
  - RASH GENERALISED [None]
